FAERS Safety Report 6154499-3 (Version None)
Quarter: 2009Q2

REPORT INFORMATION
  Report Type: 
  Country: None (occurrence: None)
  Receive Date: 20090414
  Receipt Date: 20090410
  Transmission Date: 20091009
  Serious: Yes (Other)
  Sender: FDA-Public Use
  Company Number: GB-PFIZER INC-2009174125

PATIENT

DRUGS (5)
  1. ATORVASTATIN CALCIUM [Suspect]
     Indication: BLOOD CHOLESTEROL INCREASED
     Dosage: 20 MG, UNK
     Route: 048
     Dates: start: 20060101, end: 20080101
  2. ATORVASTATIN CALCIUM [Suspect]
     Dosage: 40 MG, 1X/DAY
     Route: 048
     Dates: start: 20081101, end: 20090124
  3. ALCOHOL [Concomitant]
     Route: 048
  4. QVAR 40 [Concomitant]
     Indication: ASTHMA
     Dosage: UNK
     Route: 055
  5. VENTOLIN [Concomitant]
     Indication: ASTHMA
     Dosage: UNK
     Route: 055

REACTIONS (5)
  - BLOOD POTASSIUM INCREASED [None]
  - CLONIC CONVULSION [None]
  - DEHYDRATION [None]
  - LOSS OF CONSCIOUSNESS [None]
  - RHABDOMYOLYSIS [None]
